FAERS Safety Report 15103989 (Version 2)
Quarter: 2018Q3

REPORT INFORMATION
  Report Type: Spontaneous
  Country: AT (occurrence: AT)
  Receive Date: 20180703
  Receipt Date: 20180716
  Transmission Date: 20181010
  Serious: Yes (Other)
  Sender: FDA-Public Use
  Company Number: AT-OTSUKA-2018_018284

PATIENT
  Age: 27 Year
  Sex: Female
  Weight: 65 kg

DRUGS (41)
  1. LAMICTAL [Suspect]
     Active Substance: LAMOTRIGINE
     Dosage: 125 MG, UNK
     Route: 065
     Dates: start: 20170103, end: 20170108
  2. DOMINAL (ACETYLSALICYLIC ACID) [Suspect]
     Active Substance: ASPIRIN
     Dosage: 40 MG, UNK
     Route: 065
     Dates: end: 20161219
  3. WELLBUTRIN [Suspect]
     Active Substance: BUPROPION HYDROCHLORIDE
     Indication: PRODUCT USED FOR UNKNOWN INDICATION
     Dosage: 150 MG, UNK
     Route: 065
     Dates: start: 20161207, end: 20161215
  4. ZOLDEM [Suspect]
     Active Substance: ZOLPIDEM TARTRATE
     Dosage: 5 MG, UNK
     Route: 065
     Dates: start: 20161212, end: 20161213
  5. ZOLDEM [Suspect]
     Active Substance: ZOLPIDEM TARTRATE
     Dosage: 5 MG, UNK
     Route: 065
     Dates: start: 20170113, end: 20170123
  6. INDERAL [Suspect]
     Active Substance: PROPRANOLOL HYDROCHLORIDE
     Indication: PRODUCT USED FOR UNKNOWN INDICATION
     Dosage: 10 MG, UNK
     Route: 065
     Dates: start: 20161220, end: 20161226
  7. KALIORAL [Concomitant]
     Indication: PRODUCT USED FOR UNKNOWN INDICATION
     Dosage: 1 MG, UNK
     Route: 065
     Dates: start: 20161206, end: 20161209
  8. CITALOPRAM [Concomitant]
     Active Substance: CITALOPRAM HYDROBROMIDE
     Dosage: 20 MG, UNK
     Route: 065
     Dates: start: 20161225, end: 20161225
  9. DOXAZOSIN [Concomitant]
     Active Substance: DOXAZOSIN\DOXAZOSIN MESYLATE
     Indication: PRODUCT USED FOR UNKNOWN INDICATION
     Dosage: 2 MG, UNK
     Route: 065
     Dates: start: 20161223, end: 20161224
  10. DOXAZOSIN [Concomitant]
     Active Substance: DOXAZOSIN\DOXAZOSIN MESYLATE
     Dosage: 1 MG, UNK
     Route: 065
     Dates: start: 20170103, end: 20170106
  11. DOXAZOSIN [Concomitant]
     Active Substance: DOXAZOSIN\DOXAZOSIN MESYLATE
     Dosage: 2 MG, UNK
     Route: 065
     Dates: start: 20170107, end: 20170108
  12. LAMICTAL [Suspect]
     Active Substance: LAMOTRIGINE
     Dosage: 175 MG, UNK
     Route: 065
     Dates: start: 20170117, end: 20170123
  13. WELLBUTRIN [Suspect]
     Active Substance: BUPROPION HYDROCHLORIDE
     Dosage: 150 MG, UNK
     Route: 065
     Dates: start: 20161227, end: 20170110
  14. PRAXITEN [Suspect]
     Active Substance: OXAZEPAM
     Indication: PRODUCT USED FOR UNKNOWN INDICATION
     Dosage: 15 MG, UNK
     Route: 065
     Dates: start: 20161224, end: 20161224
  15. PRAXITEN [Suspect]
     Active Substance: OXAZEPAM
     Dosage: 30 MG, UNK
     Route: 065
     Dates: start: 20161221, end: 20161223
  16. WELLBUTRIN [Suspect]
     Active Substance: BUPROPION HYDROCHLORIDE
     Dosage: 150 MG, UNK
     Route: 065
     Dates: start: 20170118
  17. OLEOVIT (RETINOL) [Suspect]
     Active Substance: RETINOL
     Indication: PRODUCT USED FOR UNKNOWN INDICATION
     Dosage: 30 MG, UNK
     Route: 065
  18. INDERAL [Suspect]
     Active Substance: PROPRANOLOL HYDROCHLORIDE
     Dosage: 10?20 MG
     Route: 065
     Dates: start: 20161208, end: 20161213
  19. CITALOPRAM [Concomitant]
     Active Substance: CITALOPRAM HYDROBROMIDE
     Indication: PRODUCT USED FOR UNKNOWN INDICATION
     Dosage: 10 MG, UNK
     Route: 065
     Dates: start: 20161223, end: 20161224
  20. TEMESTA [Concomitant]
     Dosage: 1 MG, UNK
     Route: 065
     Dates: start: 20161226, end: 20161226
  21. LAMICTAL [Suspect]
     Active Substance: LAMOTRIGINE
     Dosage: 100 MG, UNK
     Route: 065
     Dates: start: 20161227, end: 20170102
  22. LAMICTAL [Suspect]
     Active Substance: LAMOTRIGINE
     Dosage: 225 MG, UNK
     Route: 065
     Dates: start: 20170109, end: 20170109
  23. ZOLDEM [Suspect]
     Active Substance: ZOLPIDEM TARTRATE
     Indication: PRODUCT USED FOR UNKNOWN INDICATION
     Dosage: 10 MG, UNK
     Route: 065
     Dates: start: 20161214, end: 20161214
  24. VENLAFAXINE ER [Suspect]
     Active Substance: VENLAFAXINE HYDROCHLORIDE
     Indication: PRODUCT USED FOR UNKNOWN INDICATION
     Dosage: 75 MG, UNK
     Route: 065
     Dates: start: 20161216, end: 20161218
  25. TEMESTA [Concomitant]
     Dosage: 1.5 MG, UNK
     Route: 065
     Dates: start: 20161225, end: 20161225
  26. LAMICTAL [Suspect]
     Active Substance: LAMOTRIGINE
     Indication: PRODUCT USED FOR UNKNOWN INDICATION
     Dosage: 75 MG, UNK
     Route: 065
     Dates: start: 20161220, end: 20161226
  27. LAMICTAL [Suspect]
     Active Substance: LAMOTRIGINE
     Dosage: 50 MG, UNK
     Route: 065
     Dates: start: 20161213, end: 20161219
  28. LAMICTAL [Suspect]
     Active Substance: LAMOTRIGINE
     Dosage: 150 MG, UNK
     Route: 065
     Dates: start: 20170110, end: 20170116
  29. INDERAL [Suspect]
     Active Substance: PROPRANOLOL HYDROCHLORIDE
     Dosage: 10 MG, UNK
     Route: 065
     Dates: start: 20161231, end: 20161231
  30. ABILIFY [Suspect]
     Active Substance: ARIPIPRAZOLE
     Indication: PRODUCT USED FOR UNKNOWN INDICATION
     Dosage: 5 MG, QD
     Route: 065
     Dates: start: 20161214, end: 20161221
  31. LAMICTAL [Suspect]
     Active Substance: LAMOTRIGINE
     Dosage: 25 MG, UNK
     Route: 065
     Dates: start: 201611, end: 20161212
  32. LAMICTAL [Suspect]
     Active Substance: LAMOTRIGINE
     Dosage: 200 MG, UNK
     Route: 065
     Dates: start: 20170124
  33. DOMINAL (ACETYLSALICYLIC ACID) [Suspect]
     Active Substance: ASPIRIN
     Indication: PRODUCT USED FOR UNKNOWN INDICATION
     Dosage: 80 MG, UNK
     Route: 065
     Dates: start: 20161220, end: 20161226
  34. DOMINAL (ACETYLSALICYLIC ACID) [Suspect]
     Active Substance: ASPIRIN
     Dosage: 80 MG, UNK
     Route: 065
     Dates: start: 20161215, end: 20161215
  35. INDERAL [Suspect]
     Active Substance: PROPRANOLOL HYDROCHLORIDE
     Dosage: 10 MG, UNK
     Route: 065
     Dates: start: 20161215, end: 20161217
  36. TEMESTA [Concomitant]
     Dosage: 0.5 MG, UNK
     Route: 065
     Dates: start: 20161227, end: 20161227
  37. TEMESTA [Concomitant]
     Indication: PRODUCT USED FOR UNKNOWN INDICATION
     Dosage: 1 MG, UNK
     Route: 065
     Dates: start: 20161223, end: 20161224
  38. WELLBUTRIN [Suspect]
     Active Substance: BUPROPION HYDROCHLORIDE
     Dosage: 300 MG, UNK
     Route: 065
     Dates: start: 20170111, end: 20170117
  39. PRAXITEN [Suspect]
     Active Substance: OXAZEPAM
     Dosage: 15 MG, UNK
     Route: 065
     Dates: start: 20161208, end: 20161208
  40. INDERAL [Suspect]
     Active Substance: PROPRANOLOL HYDROCHLORIDE
     Dosage: 10 MG, UNK
     Route: 065
     Dates: start: 20170111, end: 20170113
  41. FRESUBIN [Concomitant]
     Active Substance: AMINO ACIDS\DEXTROSE\ELECTROLYTES NOS\SOYBEAN OIL\VITAMINS
     Indication: PRODUCT USED FOR UNKNOWN INDICATION
     Dosage: 2 DF, UNK
     Route: 065
     Dates: start: 20161214, end: 20161220

REACTIONS (5)
  - Nightmare [Unknown]
  - Visual impairment [Recovered/Resolved]
  - Galactorrhoea [Recovering/Resolving]
  - Urinary retention [Recovered/Resolved]
  - Vision blurred [Unknown]

NARRATIVE: CASE EVENT DATE: 20161215
